FAERS Safety Report 9410640 (Version 1)
Quarter: 2013Q2

REPORT INFORMATION
  Report Type: Spontaneous
  Country: IT (occurrence: None)
  Receive Date: 20130621
  Receipt Date: 20130621
  Transmission Date: 20140414
  Serious: Yes (Other)
  Sender: FDA-Public Use
  Company Number: 2013AP006147

PATIENT
  Sex: Male

DRUGS (2)
  1. RAMIPRIL (RAMIPRIL) [Suspect]
  2. TRIAZOLAM (TRIAZOLAM) [Suspect]

REACTIONS (1)
  - Sopor [None]
